FAERS Safety Report 14069257 (Version 1)
Quarter: 2017Q4

REPORT INFORMATION
  Report Type: Spontaneous
  Country: NL (occurrence: NL)
  Receive Date: 20171010
  Receipt Date: 20171010
  Transmission Date: 20180321
  Serious: Yes (Death)
  Sender: FDA-Public Use
  Company Number: NL-BAYER-2017-188778

PATIENT
  Age: 77 Year
  Sex: Female

DRUGS (2)
  1. MACROGOL 3350 [Suspect]
     Active Substance: POLYETHYLENE GLYCOL 3350
     Indication: COLONOSCOPY
     Dosage: 4 L, UNK (2 L ? 2 L WITHIN 48 HOURS)
  2. DIGOXIN. [Concomitant]
     Active Substance: DIGOXIN

REACTIONS (3)
  - Metabolic acidosis [Fatal]
  - Circulatory collapse [Fatal]
  - Hypokalaemia [Fatal]
